FAERS Safety Report 7354162-7 (Version None)
Quarter: 2011Q1

REPORT INFORMATION
  Report Type: 
  Country: None (occurrence: None)
  Receive Date: 20110316
  Receipt Date: 20110308
  Transmission Date: 20110831
  Serious: Yes (Hospitalization, Disabling)
  Sender: FDA-Public Use
  Company Number: DK-BIOGENIDEC-2010BI015399

PATIENT
  Age: 53 Year
  Sex: Female

DRUGS (2)
  1. TYSABRI [Suspect]
     Indication: MULTIPLE SCLEROSIS
     Route: 042
     Dates: start: 20070817, end: 20090318
  2. TYSABRI [Suspect]
     Route: 042
     Dates: start: 20090423

REACTIONS (1)
  - COGNITIVE DISORDER [None]
